FAERS Safety Report 21601246 (Version 1)
Quarter: 2022Q4

REPORT INFORMATION
  Report Type: Spontaneous
  Country: US (occurrence: US)
  Receive Date: 20221116
  Receipt Date: 20221116
  Transmission Date: 20230113
  Serious: Yes (Other)
  Sender: FDA-Public Use
  Company Number: US-GLAXOSMITHKLINE-US2022166993

PATIENT
  Sex: Female

DRUGS (1)
  1. BENLYSTA [Suspect]
     Active Substance: BELIMUMAB
     Indication: Product used for unknown indication
     Dosage: 200 MG,BENLYSTA 200MG PFS 27GX4 PK

REACTIONS (4)
  - Sepsis [Unknown]
  - Localised infection [Unknown]
  - Procedural complication [Unknown]
  - Wound [Unknown]
